FAERS Safety Report 7503781-3 (Version None)
Quarter: 2011Q2

REPORT INFORMATION
  Report Type: 
  Country: None (occurrence: None)
  Receive Date: 20110518
  Receipt Date: 20110503
  Transmission Date: 20111010
  Serious: Yes (Other)
  Sender: FDA-Public Use
  Company Number: FK201100951

PATIENT
  Sex: Male

DRUGS (2)
  1. CARBOPLATIN [Suspect]
     Indication: MEDULLOBLASTOMA RECURRENT
     Dosage: 500 MG/M2
  2. ETOPOSIDE [Suspect]
     Indication: MEDULLOBLASTOMA RECURRENT
     Dosage: 500 MG/M2

REACTIONS (7)
  - GASTROINTESTINAL TOXICITY [None]
  - TINNITUS [None]
  - VOMITING [None]
  - ABDOMINAL PAIN UPPER [None]
  - NAUSEA [None]
  - OTOTOXICITY [None]
  - DEAFNESS [None]
